FAERS Safety Report 9115943 (Version 4)
Quarter: 2013Q3

REPORT INFORMATION
  Report Type: Report from Study
  Country: FR (occurrence: FR)
  Receive Date: 20130225
  Receipt Date: 20130815
  Transmission Date: 20140515
  Serious: Yes (Other)
  Sender: FDA-Public Use
  Company Number: FR-CELGENEUS-056-21880-13022033

PATIENT
  Age: 64 Year
  Sex: Female
  Weight: 47 kg

DRUGS (3)
  1. REVLIMID [Suspect]
     Indication: NON-HODGKIN^S LYMPHOMA
     Dosage: 5 MILLIGRAM
     Route: 048
     Dates: start: 20120713, end: 20130131
  2. RITUXIMAB [Concomitant]
     Indication: LYMPHOMA
     Route: 041
     Dates: start: 20120712
  3. CANDESARTAN [Concomitant]
     Indication: PRODUCT USED FOR UNKNOWN INDICATION
     Route: 065

REACTIONS (1)
  - Retinal detachment [Recovered/Resolved]
